FAERS Safety Report 6929288-X (Version None)
Quarter: 2010Q3

REPORT INFORMATION
  Report Type: 
  Country: None (occurrence: None)
  Receive Date: 20100817
  Receipt Date: 20100812
  Transmission Date: 20110219
  Serious: Yes (Death, Life-Threatening, Hospitalization, Other)
  Sender: FDA-Public Use
  Company Number: CO-BRISTOL-MYERS SQUIBB COMPANY-14917009

PATIENT
  Age: 58 Year
  Sex: Female
  Weight: 31 kg

DRUGS (3)
  1. CETUXIMAB [Suspect]
     Indication: NON-SMALL CELL LUNG CANCER
     Dosage: 5MG/ML;RECENT INF-22DEC09
     Route: 042
     Dates: start: 20091123
  2. PACLITAXEL [Suspect]
     Indication: NON-SMALL CELL LUNG CANCER
     Dosage: LAST INF-17DEC09, DAY 1 OF 21 DAY CYCLE
     Route: 042
     Dates: start: 20091123
  3. CARBOPLATIN [Suspect]
     Indication: NON-SMALL CELL LUNG CANCER
     Dosage: LAST INF-17DEC09, DAY 1 OF 21 DAY CYCLE
     Route: 042
     Dates: start: 20091123

REACTIONS (3)
  - DEHYDRATION [None]
  - DIARRHOEA [None]
  - VOMITING [None]
